FAERS Safety Report 9163091 (Version 1)
Quarter: 2013Q1

REPORT INFORMATION
  Report Type: Spontaneous
  Country: GB (occurrence: None)
  Receive Date: 20130227
  Receipt Date: 20130227
  Transmission Date: 20140127
  Serious: Yes (Other)
  Sender: FDA-Public Use
  Company Number: AUR-APL-2013-01540

PATIENT
  Age: 46 Year
  Sex: Male
  Weight: 86 kg

DRUGS (3)
  1. BISOPROLOL [Suspect]
     Indication: HYPERTENSION
     Dosage: (10 MG, 1 IN 1 D)
     Route: 048
     Dates: start: 20130114
  2. DOXAZOSIN [Concomitant]
  3. RAMIPRIL [Concomitant]

REACTIONS (7)
  - Dementia [None]
  - Cognitive disorder [None]
  - Dissociation [None]
  - Amnesia [None]
  - Anger [None]
  - Frustration [None]
  - Impaired driving ability [None]
